FAERS Safety Report 21503880 (Version 6)
Quarter: 2024Q4

REPORT INFORMATION
  Report Type: Report from Study
  Country: IL (occurrence: IL)
  Receive Date: 20221025
  Receipt Date: 20241209
  Transmission Date: 20250114
  Serious: Yes (Hospitalization)
  Sender: INCYTE
  Company Number: IL-002147023-NVSC2022IL229906

PATIENT

DRUGS (14)
  1. RUXOLITINIB [Suspect]
     Active Substance: RUXOLITINIB
     Indication: Myelofibrosis
     Dosage: 10 MG, BID
     Route: 048
     Dates: start: 20220207
  2. NAVITOCLAX [Suspect]
     Active Substance: NAVITOCLAX
     Indication: Myelofibrosis
     Dosage: 150 MG, QD
     Route: 048
     Dates: start: 20220207
  3. METFORMIN HYDROCHLORIDE\SITAGLIPTIN PHOSPHATE [Concomitant]
     Active Substance: METFORMIN HYDROCHLORIDE\SITAGLIPTIN PHOSPHATE
     Indication: Diabetes mellitus
     Dosage: UNK, (50/850 MG, 2/DAYS)
     Route: 065
     Dates: start: 20191222
  4. ASPIRIN [Concomitant]
     Active Substance: ASPIRIN
     Indication: Pulmonary embolism
     Dosage: 100 MG, QD
     Route: 065
     Dates: start: 20160515
  5. DUPLEX [SULFADIAZINE;TRIMETHOPRIM] [Concomitant]
     Indication: Hypertension
     Dosage: UNK, QD (5/80 MG)
     Route: 065
     Dates: start: 20170424
  6. PREGABALIN [Concomitant]
     Active Substance: PREGABALIN
     Indication: Neuropathy peripheral
     Dosage: 75 MG, BID
     Route: 065
     Dates: start: 20201110
  7. AMITRIPTYLINE HYDROCHLORIDE [Concomitant]
     Active Substance: AMITRIPTYLINE HYDROCHLORIDE
     Indication: Fibromyalgia
     Dosage: 10 MG, QD
     Route: 065
     Dates: start: 20110302
  8. AMITRIPTYLINE HYDROCHLORIDE [Concomitant]
     Active Substance: AMITRIPTYLINE HYDROCHLORIDE
     Indication: Neuropathy peripheral
  9. MAGNESIUM [Concomitant]
     Active Substance: MAGNESIUM
     Indication: Bone pain
     Dosage: 520 MG, BID
     Route: 065
     Dates: start: 20200122
  10. METAMIZOLE [Concomitant]
     Active Substance: METAMIZOLE
     Indication: Bone pain
     Dosage: 500 MG, PRN
     Route: 065
     Dates: start: 20080926
  11. METAMIZOLE [Concomitant]
     Active Substance: METAMIZOLE
     Indication: Abdominal pain
  12. IMIPRAMINE HYDROCHLORIDE [Concomitant]
     Active Substance: IMIPRAMINE HYDROCHLORIDE
     Indication: Nausea
     Dosage: 10 MG, PRN
     Route: 065
     Dates: start: 20220215
  13. ZALDIAR [Concomitant]
     Active Substance: ACETAMINOPHEN\TRAMADOL HYDROCHLORIDE
     Indication: Musculoskeletal chest pain
     Dosage: 37.5 MG, PRN
     Route: 065
     Dates: start: 20220207
  14. LOPERAMIDE HYDROCHLORIDE [Concomitant]
     Active Substance: LOPERAMIDE HYDROCHLORIDE
     Indication: Diarrhoea
     Dosage: 1 DOSAGE FORM, QD
     Route: 065
     Dates: start: 20220404

REACTIONS (4)
  - Anaemia [Recovered/Resolved]
  - Pneumonia [Recovered/Resolved]
  - Cough [Recovered/Resolved]
  - Urinary tract infection [Recovered/Resolved]

NARRATIVE: CASE EVENT DATE: 20220901
